FAERS Safety Report 9581022 (Version 1)
Quarter: 2013Q4

REPORT INFORMATION
  Report Type: Spontaneous
  Country: GB (occurrence: GB)
  Receive Date: 20131002
  Receipt Date: 20131002
  Transmission Date: 20140711
  Serious: Yes (Other)
  Sender: FDA-Public Use
  Company Number: GB-PFIZER INC-2013279359

PATIENT
  Age: 72 Year
  Sex: Male

DRUGS (9)
  1. AMLODIPINE BESILATE [Suspect]
     Indication: HYPERTENSION
     Dosage: 5 MG, UNK
  2. SIMVASTATIN [Interacting]
     Dosage: 40 MG, 1X/DAY
  3. LISINOPRIL [Interacting]
     Indication: HYPERTENSION
     Dosage: 40 MG, UNK
  4. RANITIDINE [Concomitant]
     Dosage: UNK
  5. ATENOLOL [Concomitant]
     Dosage: UNK
  6. ATORVASTATIN [Concomitant]
  7. DOXAZOSIN [Concomitant]
     Dosage: 2 MG, UNK
  8. DOXAZOSIN [Concomitant]
     Dosage: 4 MG, UNK
  9. DOXAZOSIN [Concomitant]
     Dosage: 2 MG, UNK

REACTIONS (8)
  - Drug interaction [Unknown]
  - Myalgia [Unknown]
  - Arthralgia [Unknown]
  - Malaise [Unknown]
  - Blood glucose increased [Unknown]
  - White blood cell count increased [Unknown]
  - Orthostatic hypotension [Unknown]
  - Bradycardia [Unknown]
